FAERS Safety Report 24067057 (Version 2)
Quarter: 2024Q3

REPORT INFORMATION
  Report Type: Spontaneous
  Country: US (occurrence: US)
  Receive Date: 20240709
  Receipt Date: 20240813
  Transmission Date: 20241016
  Serious: Yes (Other)
  Sender: ROCHE
  Company Number: US-ROCHE-10000006511

PATIENT
  Age: 54 Year
  Sex: Female

DRUGS (1)
  1. OCREVUS [Suspect]
     Active Substance: OCRELIZUMAB
     Indication: Relapsing-remitting multiple sclerosis
     Dosage: LAST OCREVUS DOSE: 28-DEC-2023
     Route: 065
     Dates: start: 20221213

REACTIONS (5)
  - Breast cancer [Unknown]
  - Invasive lobular breast carcinoma [Unknown]
  - Cyst [Unknown]
  - Anisomastia [Unknown]
  - Nodule [Unknown]
